FAERS Safety Report 18490278 (Version 1)
Quarter: 2020Q4

REPORT INFORMATION
  Report Type: Spontaneous
  Country: CN (occurrence: CN)
  Receive Date: 20201111
  Receipt Date: 20201111
  Transmission Date: 20210114
  Serious: Yes (Hospitalization, Other)
  Sender: FDA-Public Use
  Company Number: CN-009507513-2011CHN004981

PATIENT
  Age: 66 Year
  Sex: Female

DRUGS (3)
  1. PEMBROLIZUMAB. [Suspect]
     Active Substance: PEMBROLIZUMAB
     Indication: OESOPHAGEAL SQUAMOUS CELL CARCINOMA METASTATIC
     Dosage: 2MG/KG 100MG, Q3W
     Dates: start: 20190304
  2. PACLITAXEL. [Concomitant]
     Active Substance: PACLITAXEL
     Indication: OESOPHAGEAL SQUAMOUS CELL CARCINOMA METASTATIC
     Dosage: 135MG/M^2, Q3W
     Dates: start: 20190304
  3. PACLITAXEL. [Concomitant]
     Active Substance: PACLITAXEL
     Dosage: 150 MG Q3W
     Dates: start: 20190420

REACTIONS (3)
  - Cardiomyopathy [Recovered/Resolved]
  - Immune-mediated hypothyroidism [Recovering/Resolving]
  - Product use issue [Unknown]

NARRATIVE: CASE EVENT DATE: 20190304
